FAERS Safety Report 8956234 (Version 1)
Quarter: 2012Q4

REPORT INFORMATION
  Report Type: 
  Country: US (occurrence: US)
  Receive Date: 20121210
  Receipt Date: 20121210
  Transmission Date: 20130627
  Serious: Yes (Death, Other)
  Sender: FDA-Public Use
  Company Number: PHHY2012US112654

PATIENT
  Age: 67 Year
  Sex: Female

DRUGS (2)
  1. DIAZEPAM [Suspect]
  2. PROPOXYPHENE AND ACETAMINOPHEN [Suspect]

REACTIONS (4)
  - Death [Fatal]
  - Epilepsy [Recovered/Resolved]
  - Toxicity to various agents [Unknown]
  - Unresponsive to stimuli [Unknown]
